FAERS Safety Report 7353701-X (Version None)
Quarter: 2011Q1

REPORT INFORMATION
  Report Type: 
  Country: None (occurrence: None)
  Receive Date: 20110303
  Receipt Date: 20100104
  Transmission Date: 20110831
  Serious: Yes (Other)
  Sender: FDA-Public Use
  Company Number: US-003801

PATIENT
  Age: 40 Year
  Sex: Female

DRUGS (2)
  1. ISOVUE-300 [Suspect]
     Indication: CHEST PAIN
     Dosage: 30ML ONCE INTRACORONARY
     Route: 022
     Dates: start: 20091204, end: 20091204
  2. ISOVUE-300 [Suspect]
     Indication: CATHETERISATION CARDIAC
     Dosage: 30ML ONCE INTRACORONARY
     Route: 022
     Dates: start: 20091204, end: 20091204

REACTIONS (1)
  - ANAPHYLACTIC SHOCK [None]
